FAERS Safety Report 10734139 (Version 2)
Quarter: 2015Q1

REPORT INFORMATION
  Report Type: Report from Study
  Country: PL (occurrence: PL)
  Receive Date: 20150123
  Receipt Date: 20150213
  Transmission Date: 20150721
  Serious: Yes (Hospitalization, Other)
  Sender: FDA-Public Use
  Company Number: PL-ABBVIE-15P-129-1332015-00

PATIENT
  Age: 29 Year
  Sex: Female

DRUGS (8)
  1. HUMIRA [Suspect]
     Active Substance: ADALIMUMAB
     Indication: COLITIS ULCERATIVE
     Route: 058
     Dates: start: 20140627, end: 20140725
  2. ENCORTON [Concomitant]
     Active Substance: PREDNISONE
     Route: 048
     Dates: start: 20140719, end: 20140725
  3. DEBRETIN [Concomitant]
     Indication: COLITIS ULCERATIVE
     Route: 048
     Dates: start: 20130227
  4. ASAMAX [Concomitant]
     Indication: COLITIS ULCERATIVE
     Route: 048
     Dates: start: 20140222
  5. AZATHIOPRYNA [Concomitant]
     Indication: COLITIS ULCERATIVE
     Route: 048
     Dates: start: 20121128
  6. ENCORTON [Concomitant]
     Active Substance: PREDNISONE
     Indication: COLITIS ULCERATIVE
     Route: 048
     Dates: start: 201203, end: 20140711
  7. ENCORTON [Concomitant]
     Active Substance: PREDNISONE
     Route: 048
     Dates: start: 20140712, end: 20140718
  8. DESOGESTREL AND ETHINYL ESTRADIOL [Concomitant]
     Active Substance: DESOGESTREL\ETHINYL ESTRADIOL
     Indication: CONTRACEPTION
     Dosage: 0.02+0.15
     Route: 048
     Dates: start: 201301, end: 201407

REACTIONS (1)
  - Vanishing twin syndrome [Unknown]

NARRATIVE: CASE EVENT DATE: 20150102
